FAERS Safety Report 25937344 (Version 2)
Quarter: 2025Q4

REPORT INFORMATION
  Report Type: Spontaneous
  Country: US (occurrence: US)
  Receive Date: 20251018
  Receipt Date: 20251111
  Transmission Date: 20260117
  Serious: No
  Sender: ASPIRO PHARMA
  Company Number: US-ASPIRO-ASP2025US06180

PATIENT
  Age: 31 Year
  Sex: Male

DRUGS (1)
  1. LIDOCAINE [Suspect]
     Active Substance: LIDOCAINE
     Indication: Nerve block
     Dosage: 0.4 CC, LOCAL, 2 ATTEMPTS AT ANESTHESIA MADE
     Route: 065

REACTIONS (1)
  - Drug effect less than expected [Unknown]
